FAERS Safety Report 10305783 (Version 1)
Quarter: 2014Q3

REPORT INFORMATION
  Report Type: Spontaneous
  Country: US (occurrence: None)
  Receive Date: 20140711
  Receipt Date: 20140711
  Transmission Date: 20150326
  Serious: Yes (Disabling)
  Sender: FDA-Public Use
  Company Number: None

PATIENT
  Age: 64 Year
  Sex: Male
  Weight: 78.02 kg

DRUGS (1)
  1. ANTARA [Suspect]
     Active Substance: FENOFIBRATE
     Indication: BLOOD CHOLESTEROL INCREASED
     Dosage: 1, TAKEN BY MOUTH
     Route: 048
     Dates: start: 20120601, end: 20130617

REACTIONS (3)
  - Muscular weakness [None]
  - Gait disturbance [None]
  - Activities of daily living impaired [None]

NARRATIVE: CASE EVENT DATE: 20130623
